FAERS Safety Report 4458941-5 (Version None)
Quarter: 2004Q3

REPORT INFORMATION
  Report Type: 
  Country: None (occurrence: None)
  Receive Date: 20040923
  Receipt Date: 20040923
  Transmission Date: 20050211
  Serious: No
  Sender: FDA-Public Use
  Company Number: None

PATIENT

DRUGS (2)
  1. XYLOCAINE [Suspect]
     Dosage: INJECTABLE
  2. POLOXAMER 188 [Suspect]
     Dosage: LIQUID

REACTIONS (2)
  - BURNING SENSATION [None]
  - MEDICATION ERROR [None]
